FAERS Safety Report 9817647 (Version 1)
Quarter: 2013Q4

REPORT INFORMATION
  Report Type: Spontaneous
  Country: US (occurrence: None)
  Receive Date: 20131223
  Receipt Date: 20131223
  Transmission Date: 20140711
  Serious: No
  Sender: FDA-Public Use
  Company Number: 218647

PATIENT
  Age: 63 Year
  Sex: Male

DRUGS (2)
  1. PICATO (OINTMENT) [Suspect]
     Indication: PRODUCT USED FOR UNKNOWN INDICATION
     Dosage: TOPICAL
     Route: 061
  2. 5-FU (FLUOROURACIL) [Concomitant]

REACTIONS (1)
  - Drug ineffective [None]
